FAERS Safety Report 8539687-0 (Version None)
Quarter: 2012Q3

REPORT INFORMATION
  Report Type: 
  Country: None (occurrence: None)
  Receive Date: 20120726
  Receipt Date: 20110720
  Transmission Date: 20120928
  Serious: No
  Sender: FDA-Public Use
  Company Number: US-ASTRAZENECA-2008UW00666

PATIENT
  Age: 10181 Day
  Sex: Male
  Weight: 99.8 kg

DRUGS (15)
  1. LITHIUM CARBONATE [Concomitant]
     Dates: start: 20050826
  2. NORVASC [Concomitant]
     Dates: start: 20051003
  3. LEVOTHROID [Concomitant]
     Dosage: 25 MCG
     Dates: start: 20060207
  4. SEROQUEL [Suspect]
     Dosage: VARIOUS DOSES, INCLUDING BUT NOT LIMITED TO 25 MG, 100 MG, AND 200 MG
     Route: 048
     Dates: start: 20020401
  5. AMBIEN [Concomitant]
     Dates: start: 20051205
  6. SEROQUEL [Suspect]
     Indication: BIPOLAR DISORDER
     Dosage: 25-100 MG
     Route: 048
     Dates: start: 20020401
  7. SEROQUEL [Suspect]
     Route: 048
     Dates: start: 20050826
  8. BUSPAR [Concomitant]
     Dates: start: 20040114
  9. AMBIEN [Concomitant]
     Route: 048
     Dates: start: 20020401
  10. TRAZODONE HYDROCHLORIDE [Concomitant]
     Dosage: 50-150 MG
     Route: 048
     Dates: start: 20020402
  11. CLARITIN [Concomitant]
     Route: 048
     Dates: start: 20020403
  12. DEPAKOTE [Concomitant]
     Dates: start: 19970101
  13. RISPERDAL [Concomitant]
     Dates: start: 19980101, end: 20020101
  14. LITHIUM CARBONATE [Concomitant]
     Dates: start: 20040101
  15. TYLENOL [Concomitant]
     Indication: PAIN
     Route: 048
     Dates: start: 20020404

REACTIONS (2)
  - TYPE 2 DIABETES MELLITUS [None]
  - TOOTH LOSS [None]
